FAERS Safety Report 7872376-4 (Version None)
Quarter: 2011Q4

REPORT INFORMATION
  Report Type: 
  Country: None (occurrence: None)
  Receive Date: 20111030
  Receipt Date: 20110318
  Transmission Date: 20120403
  Serious: Yes (Other)
  Sender: FDA-Public Use
  Company Number: US-AMGEN-USASP2011015103

PATIENT
  Age: 46 Year
  Sex: Female

DRUGS (1)
  1. ENBREL [Suspect]
     Indication: RHEUMATOID ARTHRITIS
     Dosage: 50 MG, QWK
     Dates: start: 20080501

REACTIONS (11)
  - CARDIAC FAILURE CONGESTIVE [None]
  - FATIGUE [None]
  - COUGH [None]
  - CHEST DISCOMFORT [None]
  - VISUAL IMPAIRMENT [None]
  - EXERTIONAL HEADACHE [None]
  - TOOTHACHE [None]
  - INJECTION SITE PAIN [None]
  - ASTHENIA [None]
  - GINGIVAL PAIN [None]
  - SALIVA ALTERED [None]
